FAERS Safety Report 5357282-1 (Version None)
Quarter: 2007Q2

REPORT INFORMATION
  Report Type: 
  Country: None (occurrence: None)
  Receive Date: 20070612
  Receipt Date: 20070531
  Transmission Date: 20071010
  Serious: Yes (Hospitalization)
  Sender: FDA-Public Use
  Company Number: FSC_00116_2007

PATIENT
  Age: 69 Year
  Sex: Male
  Weight: 82 kg

DRUGS (3)
  1. ISOPTIN [Suspect]
     Indication: HYPERTENSION
     Dosage: (ORAL)
     Dates: end: 20070407
  2. SPIRONOLACTONE [Suspect]
  3. PANTOPRAZOLE SODIUM [Concomitant]

REACTIONS (9)
  - ASCITES [None]
  - ATRIOVENTRICULAR BLOCK COMPLETE [None]
  - BRADYCARDIA [None]
  - CARDIAC ARREST [None]
  - HYPERKALAEMIA [None]
  - HYPOTENSION [None]
  - NODAL RHYTHM [None]
  - SHOCK [None]
  - TACHYPNOEA [None]
